FAERS Safety Report 6241057-5 (Version None)
Quarter: 2009Q2

REPORT INFORMATION
  Report Type: 
  Country: None (occurrence: None)
  Receive Date: 20090619
  Receipt Date: 20090619
  Transmission Date: 20091009
  Serious: No
  Sender: FDA-Public Use
  Company Number: None

PATIENT
  Sex: Male
  Weight: 64.5 kg

DRUGS (3)
  1. TOPIRAMATE [Suspect]
     Indication: COMPLEX PARTIAL SEIZURES
     Dosage: 100 MG ONCE QHS PO 25 MG ONCE QHS PO
     Route: 048
     Dates: start: 20090501
  2. TOPIRAMATE [Suspect]
     Indication: COMPLEX PARTIAL SEIZURES
     Dosage: 100 MG ONCE QHS PO 25 MG ONCE QHS PO
     Route: 048
     Dates: start: 20090601
  3. TOPIRAMATE [Suspect]

REACTIONS (2)
  - PRODUCT SUBSTITUTION ISSUE [None]
  - TOOTH DISCOLOURATION [None]
